FAERS Safety Report 7177121-6 (Version None)
Quarter: 2010Q4

REPORT INFORMATION
  Report Type: 
  Country: None (occurrence: None)
  Receive Date: 20101220
  Receipt Date: 20101208
  Transmission Date: 20110411
  Serious: Yes (Hospitalization)
  Sender: FDA-Public Use
  Company Number: FR-SANOFI-AVENTIS-2010SA074341

PATIENT
  Sex: Male

DRUGS (1)
  1. MULTAQ [Suspect]
     Route: 048

REACTIONS (1)
  - RENAL FAILURE [None]
